FAERS Safety Report 13664252 (Version 2)
Quarter: 2017Q3

REPORT INFORMATION
  Report Type: Spontaneous
  Country: DE (occurrence: DE)
  Receive Date: 20170619
  Receipt Date: 20170801
  Transmission Date: 20171127
  Serious: No
  Sender: FDA-Public Use
  Company Number: DE-FERRINGPH-2017FE02771

PATIENT

DRUGS (1)
  1. MENOGON HP [Suspect]
     Active Substance: MENOTROPINS
     Indication: INFERTILITY
     Dosage: 75 IU, UNK
     Route: 065
     Dates: start: 20170609, end: 20170609

REACTIONS (1)
  - Hypersensitivity [Recovered/Resolved]

NARRATIVE: CASE EVENT DATE: 20170609
